FAERS Safety Report 23203276 (Version 1)
Quarter: 2023Q4

REPORT INFORMATION
  Report Type: Spontaneous
  Country: US (occurrence: US)
  Receive Date: 20231120
  Receipt Date: 20231120
  Transmission Date: 20240110
  Serious: No
  Sender: FDA-Public Use
  Company Number: US-SA-SAC20231113000492

PATIENT
  Age: 36 Year
  Sex: Male
  Weight: 88 kg

DRUGS (6)
  1. DUPIXENT [Suspect]
     Active Substance: DUPILUMAB
     Indication: Dermatitis atopic
     Dosage: 300 MG, QOW
     Route: 058
     Dates: start: 202304
  2. OPZELURA [Concomitant]
     Active Substance: RUXOLITINIB PHOSPHATE
  3. OMEPRAZOLE [Concomitant]
     Active Substance: OMEPRAZOLE
  4. LEXAPRO [Concomitant]
     Active Substance: ESCITALOPRAM OXALATE
  5. MIRTAZAPINE [Concomitant]
     Active Substance: MIRTAZAPINE
  6. ATORVASTATIN CALCIUM [Concomitant]
     Active Substance: ATORVASTATIN CALCIUM
     Dosage: 75MG

REACTIONS (6)
  - Asthma [Unknown]
  - Cough [Unknown]
  - Wheezing [Unknown]
  - Chest discomfort [Unknown]
  - Eczema [Recovered/Resolved]
  - Pruritus [Recovered/Resolved]

NARRATIVE: CASE EVENT DATE: 20230101
